FAERS Safety Report 18116825 (Version 16)
Quarter: 2025Q2

REPORT INFORMATION
  Report Type: Report from Study
  Country: CO (occurrence: CO)
  Receive Date: 20200805
  Receipt Date: 20250424
  Transmission Date: 20250716
  Serious: Yes (Hospitalization, Other)
  Sender: TAKEDA
  Company Number: CO-TAKEDA-2020TUS004693

PATIENT
  Age: 65 Year
  Sex: Male
  Weight: 73 kg

DRUGS (3)
  1. VEDOLIZUMAB [Suspect]
     Active Substance: VEDOLIZUMAB
     Indication: Colitis
  2. VEDOLIZUMAB [Suspect]
     Active Substance: VEDOLIZUMAB
     Indication: Colitis ulcerative
     Dosage: 300 MILLIGRAM, Q4WEEKS
     Dates: start: 201912
  3. VEDOLIZUMAB [Suspect]
     Active Substance: VEDOLIZUMAB
     Indication: Crohn^s disease

REACTIONS (29)
  - Limb injury [Unknown]
  - Fall [Unknown]
  - Head injury [Unknown]
  - Diarrhoea [Recovering/Resolving]
  - Haemorrhage [Unknown]
  - Myocardial infarction [Unknown]
  - General physical health deterioration [Unknown]
  - Colitis ulcerative [Not Recovered/Not Resolved]
  - Decreased immune responsiveness [Unknown]
  - Large intestinal haemorrhage [Unknown]
  - Syncope [Unknown]
  - Respiratory tract infection [Unknown]
  - Muscular weakness [Unknown]
  - Haemoglobin decreased [Recovering/Resolving]
  - Hypoglycaemia [Recovering/Resolving]
  - Dehydration [Recovering/Resolving]
  - Hypoaesthesia [Unknown]
  - Burning sensation [Recovering/Resolving]
  - Pain [Unknown]
  - Treatment noncompliance [Unknown]
  - Product availability issue [Unknown]
  - Weight decreased [Unknown]
  - Rash [Recovered/Resolved]
  - Pruritus [Recovered/Resolved]
  - Influenza [Unknown]
  - Asthenia [Recovering/Resolving]
  - Oedema peripheral [Recovering/Resolving]
  - Vomiting [Recovering/Resolving]
  - Pain in extremity [Recovering/Resolving]

NARRATIVE: CASE EVENT DATE: 20201107
